FAERS Safety Report 24939142 (Version 4)
Quarter: 2025Q2

REPORT INFORMATION
  Report Type: Spontaneous
  Country: US (occurrence: US)
  Receive Date: 20250206
  Receipt Date: 20250403
  Transmission Date: 20250716
  Serious: No
  Sender: PFIZER
  Company Number: US-PFIZER INC-202400032291

PATIENT
  Age: 12 Year
  Sex: Male

DRUGS (2)
  1. GENOTROPIN [Suspect]
     Active Substance: SOMATROPIN
     Indication: End stage renal disease
     Dosage: 0.9 MG, ALTERNATE 0.8MG AND 1.0MG EVERY OTHER NIGHT
     Route: 058
     Dates: start: 20250121
  2. GENOTROPIN [Suspect]
     Active Substance: SOMATROPIN
     Indication: Short stature
     Dosage: 0.9 MG, ALTERNATE 0.8MG AND 1.0MG EVERY OTHER NIGHT
     Route: 058
     Dates: start: 20250121

REACTIONS (3)
  - Poor quality device used [Unknown]
  - Device leakage [Unknown]
  - Product dose omission issue [Unknown]
